FAERS Safety Report 20647597 (Version 4)
Quarter: 2022Q3

REPORT INFORMATION
  Report Type: Spontaneous
  Country: US (occurrence: US)
  Receive Date: 20220329
  Receipt Date: 20220810
  Transmission Date: 20221027
  Serious: No
  Sender: FDA-Public Use
  Company Number: US-AMGEN-USASP2022053526

PATIENT
  Sex: Female

DRUGS (2)
  1. PROCRIT [Suspect]
     Active Substance: ERYTHROPOIETIN
     Indication: Anaemia
     Dosage: 20000U/ML, Q2WK
     Route: 065
     Dates: start: 1999
  2. PROCRIT [Suspect]
     Active Substance: ERYTHROPOIETIN
     Dosage: 20000U/ML, QWK
     Route: 065

REACTIONS (3)
  - Device difficult to use [Unknown]
  - Accidental exposure to product [Unknown]
  - Incorrect dose administered by device [Unknown]

NARRATIVE: CASE EVENT DATE: 20220323
